FAERS Safety Report 4754021-X (Version None)
Quarter: 2005Q3

REPORT INFORMATION
  Report Type: 
  Country: None (occurrence: None)
  Receive Date: 20050826
  Receipt Date: 20050314
  Transmission Date: 20060218
  Serious: Yes (Hospitalization)
  Sender: FDA-Public Use
  Company Number: US-MERCK-0503USA02962

PATIENT
  Age: 72 Year
  Sex: Male
  Weight: 86 kg

DRUGS (7)
  1. VIOXX [Suspect]
     Indication: ARTHRITIS
     Route: 048
     Dates: start: 19990101, end: 20030401
  2. VIOXX [Suspect]
     Route: 048
     Dates: start: 20030601, end: 20040901
  3. VIOXX [Suspect]
     Indication: BACK PAIN
     Route: 048
     Dates: start: 19990101, end: 20030401
  4. VIOXX [Suspect]
     Route: 048
     Dates: start: 20030601, end: 20040901
  5. XANAX [Concomitant]
     Route: 065
     Dates: end: 20050201
  6. TYLENOL [Concomitant]
     Indication: PAIN
     Route: 065
     Dates: start: 20030101
  7. DARVOCET-N 100 [Concomitant]
     Indication: ARTHRALGIA
     Route: 065
     Dates: start: 19950101

REACTIONS (13)
  - ANXIETY [None]
  - ARRHYTHMIA [None]
  - CARDIAC DISORDER [None]
  - CEREBROVASCULAR ACCIDENT [None]
  - CHEST PAIN [None]
  - DEPRESSION [None]
  - DYSPNOEA [None]
  - GASTRIC DISORDER [None]
  - GASTROOESOPHAGEAL REFLUX DISEASE [None]
  - HERNIA [None]
  - LUNG DISORDER [None]
  - NAUSEA [None]
  - OEDEMA PERIPHERAL [None]
